FAERS Safety Report 8512257-6 (Version None)
Quarter: 2012Q3

REPORT INFORMATION
  Report Type: 
  Country: None (occurrence: None)
  Receive Date: 20120716
  Receipt Date: 20120710
  Transmission Date: 20120928
  Serious: Yes (Hospitalization, Other)
  Sender: FDA-Public Use
  Company Number: PHEH2012US012798

PATIENT
  Sex: Male
  Weight: 120.18 kg

DRUGS (1)
  1. GILENYA [Suspect]
     Indication: MULTIPLE SCLEROSIS
     Dosage: 0.5 MG, QD
     Route: 048
     Dates: start: 20120625

REACTIONS (8)
  - HEART RATE DECREASED [None]
  - RENAL IMPAIRMENT [None]
  - DEHYDRATION [None]
  - URINE OUTPUT DECREASED [None]
  - CHROMATURIA [None]
  - URINE ANALYSIS ABNORMAL [None]
  - DYSURIA [None]
  - DIZZINESS [None]
